FAERS Safety Report 5583820-X (Version None)
Quarter: 2008Q1

REPORT INFORMATION
  Report Type: 
  Country: None (occurrence: None)
  Receive Date: 20080108
  Receipt Date: 20080102
  Transmission Date: 20080703
  Serious: Yes (Other)
  Sender: FDA-Public Use
  Company Number: US-JNJFOC-20070902210

PATIENT
  Age: 66 Year
  Sex: Male

DRUGS (11)
  1. INVEGA [Suspect]
     Indication: DRUG USE FOR UNKNOWN INDICATION
     Route: 048
  2. INVEGA [Suspect]
     Indication: PSYCHOTIC DISORDER
     Route: 048
  3. RISPERDAL [Suspect]
     Route: 048
  4. RISPERDAL [Suspect]
     Indication: PSYCHOTIC DISORDER
     Route: 048
  5. GLUCOPHAGE [Concomitant]
     Indication: DIABETES MELLITUS
  6. ACTOSE [Concomitant]
     Indication: DIABETES MELLITUS
  7. PRANDIN [Concomitant]
     Indication: DIABETES MELLITUS
  8. SEROQUEL [Concomitant]
     Indication: SLEEP DISORDER
  9. VITAMIN CAP [Concomitant]
     Indication: VITAMIN SUPPLEMENTATION
  10. PREVACID [Concomitant]
     Indication: GASTROOESOPHAGEAL REFLUX DISEASE
  11. LEXAPRO [Concomitant]
     Indication: DEPRESSION
     Route: 048

REACTIONS (8)
  - ASTHENIA [None]
  - CONFUSIONAL STATE [None]
  - DELIRIUM [None]
  - DRUG INEFFECTIVE [None]
  - EXERCISE TOLERANCE DECREASED [None]
  - HEPATOMEGALY [None]
  - LETHARGY [None]
  - SWELLING [None]
